FAERS Safety Report 24584035 (Version 4)
Quarter: 2025Q2

REPORT INFORMATION
  Report Type: Report from Study
  Country: ZA (occurrence: ZA)
  Receive Date: 20241106
  Receipt Date: 20250523
  Transmission Date: 20250717
  Serious: Yes (Hospitalization, Other)
  Sender: SANDOZ
  Company Number: ZA-SANDOZ-SDZ2024ZA046958

PATIENT
  Sex: Female

DRUGS (7)
  1. ERELZI [Suspect]
     Active Substance: ETANERCEPT-SZZS
     Indication: Rheumatoid arthritis
     Dosage: 50 MG, QW
     Route: 058
     Dates: start: 20240402
  2. ERELZI [Suspect]
     Active Substance: ETANERCEPT-SZZS
     Dosage: 50 MG, QW
     Route: 058
     Dates: start: 20240909
  3. ERELZI [Suspect]
     Active Substance: ETANERCEPT-SZZS
     Dosage: 50 MG, QW
     Route: 058
     Dates: start: 20250218
  4. ERELZI [Suspect]
     Active Substance: ETANERCEPT-SZZS
     Route: 065
     Dates: start: 20020519
  5. ERELZI [Suspect]
     Active Substance: ETANERCEPT-SZZS
     Route: 065
     Dates: start: 20240507
  6. ISONIAZID [Concomitant]
     Active Substance: ISONIAZID
     Indication: Tuberculosis
     Route: 065
  7. PYRIDOXINE [Concomitant]
     Active Substance: PYRIDOXINE
     Indication: Tuberculosis
     Route: 065

REACTIONS (6)
  - Stillbirth [Unknown]
  - Exposure during pregnancy [Unknown]
  - Influenza [Recovering/Resolving]
  - Musculoskeletal discomfort [Unknown]
  - Injection site discolouration [Not Recovered/Not Resolved]
  - Product dose omission issue [Unknown]

NARRATIVE: CASE EVENT DATE: 20240101
